FAERS Safety Report 8885292 (Version 2)
Quarter: 2014Q2

REPORT INFORMATION
  Report Type: Spontaneous
  Country: DE (occurrence: DE)
  Receive Date: 20121102
  Receipt Date: 20131003
  Transmission Date: 20141212
  Serious: Yes (Death)
  Sender: FDA-Public Use
  Company Number: DE-009507513-1211DEU000044

PATIENT
  Age: 61 Year
  Sex: Female

DRUGS (3)
  1. VICTRELIS [Suspect]
     Indication: HEPATITIS C
     Dosage: 2400 MG, QD
     Route: 048
  2. PEGINTERFERON ALFA-2B [Suspect]
  3. RIBAVIRIN [Suspect]
     Indication: HEPATITIS C
     Dosage: UNK

REACTIONS (1)
  - Death [Fatal]
